FAERS Safety Report 9530012 (Version 3)
Quarter: 2013Q3

REPORT INFORMATION
  Report Type: Report from Study
  Country: CA (occurrence: CA)
  Receive Date: 20130917
  Receipt Date: 20130918
  Transmission Date: 20140515
  Serious: Yes (Other)
  Sender: FDA-Public Use
  Company Number: CA-ROCHE-1112374

PATIENT
  Age: 54 Year
  Sex: Female
  Weight: 78.5 kg

DRUGS (13)
  1. ACTEMRA [Suspect]
     Indication: RHEUMATOID ARTHRITIS
     Route: 042
     Dates: start: 20120619
  2. ACTEMRA [Suspect]
     Route: 042
     Dates: start: 20120717, end: 20130213
  3. RITUXAN [Suspect]
     Indication: RHEUMATOID ARTHRITIS
     Route: 042
     Dates: start: 20070522
  4. RITUXAN [Suspect]
     Dosage: IN SPLIT DOSES (500 MG ON TWO CONSECUTIVE DAYS).
     Route: 042
     Dates: start: 20130502
  5. GABAPENTIN [Concomitant]
  6. DEMEROL [Concomitant]
     Route: 065
  7. LIPITOR [Concomitant]
  8. CYMBALTA [Concomitant]
  9. TRAZODONE [Concomitant]
  10. FLEXERIL [Concomitant]
  11. PREDNISONE [Concomitant]
  12. METHOTREXATE [Concomitant]
  13. FOLIC ACID [Concomitant]

REACTIONS (9)
  - Platelet count decreased [Unknown]
  - Contusion [Unknown]
  - Labyrinthitis [Unknown]
  - Fatigue [Recovered/Resolved]
  - Infusion related reaction [Not Recovered/Not Resolved]
  - Drug hypersensitivity [Not Recovered/Not Resolved]
  - Sinusitis [Recovered/Resolved]
  - Weight increased [Unknown]
  - Cataract [Not Recovered/Not Resolved]
